APPROVED DRUG PRODUCT: PROCAN
Active Ingredient: PROCAINAMIDE HYDROCHLORIDE
Strength: 250MG
Dosage Form/Route: CAPSULE;ORAL
Application: A085804 | Product #001
Applicant: PARKE DAVIS DIV WARNER LAMBERT CO
Approved: Approved Prior to Jan 1, 1982 | RLD: No | RS: No | Type: DISCN